FAERS Safety Report 21117287 (Version 1)
Quarter: 2022Q3

REPORT INFORMATION
  Report Type: Spontaneous
  Country: DK (occurrence: None)
  Receive Date: 20220722
  Receipt Date: 20220722
  Transmission Date: 20221027
  Serious: Yes (Other)
  Sender: FDA-Public Use
  Company Number: DK-Unichem Pharmaceuticals (USA) Inc-UCM202207-000651

PATIENT
  Age: 57 Year
  Sex: Female

DRUGS (1)
  1. PRAMIPEXOLE DIHYDROCHLORIDE [Suspect]
     Active Substance: PRAMIPEXOLE DIHYDROCHLORIDE
     Indication: Restless legs syndrome
     Dates: start: 2007, end: 2019

REACTIONS (2)
  - Depression suicidal [Unknown]
  - Gambling disorder [Recovered/Resolved]
